FAERS Safety Report 8447384-5 (Version None)
Quarter: 2012Q2

REPORT INFORMATION
  Report Type: 
  Country: None (occurrence: None)
  Receive Date: 20120619
  Receipt Date: 20120615
  Transmission Date: 20120825
  Serious: Yes (Other)
  Sender: FDA-Public Use
  Company Number: PHHY2012NL047884

PATIENT
  Sex: Male
  Weight: 70 kg

DRUGS (8)
  1. ZOMETA [Suspect]
     Indication: PROSTATE CANCER METASTATIC
     Dosage: 4 MG/100ML (ONCE PER 42 DAY)
     Dates: start: 20120109
  2. LACTULOSE [Concomitant]
     Dosage: 15 ML, UNK
  3. ZOLADEX [Concomitant]
     Dosage: 10.8/3 MONTHS DEPOT INJECTION
  4. ZOMETA [Suspect]
     Dosage: 4 MG/100 ML, (ONCE PER 42 DAY)
     Dates: start: 20120521, end: 20120521
  5. PREDNISOLONE [Concomitant]
     Dosage: 2X5MG
  6. VERAPAMIL [Concomitant]
     Dosage: 2 X 80 MG
  7. IBUPROFEN [Concomitant]
     Dosage: 2X200MG / 1X400MG
  8. ZOMETA [Suspect]
     Dosage: 4 MG/100ML (ONCE PER 42 DAY)
     Dates: start: 20120404

REACTIONS (3)
  - OSTEONECROSIS OF JAW [None]
  - PAIN [None]
  - GINGIVAL DISORDER [None]
